FAERS Safety Report 5902591-8 (Version None)
Quarter: 2008Q3

REPORT INFORMATION
  Report Type: 
  Country: None (occurrence: None)
  Receive Date: 20080924
  Receipt Date: 20080916
  Transmission Date: 20090109
  Serious: Yes (Hospitalization)
  Sender: FDA-Public Use
  Company Number: TCI2008A04557

PATIENT
  Age: 59 Year
  Sex: Male

DRUGS (7)
  1. ACTOS [Suspect]
     Indication: TYPE 2 DIABETES MELLITUS
     Dosage: 15 MG (15 MG, 1 IN 1 D) PER ORAL
     Route: 048
     Dates: start: 20080711, end: 20080901
  2. KINEDAK (EPALRESTAT) [Concomitant]
  3. AMARYL [Concomitant]
  4. PURSENNID (SENNA ALEXANDRINA LEAF) [Concomitant]
  5. LENDORM [Concomitant]
  6. FAMOTIDINE [Concomitant]
  7. VOLTAREN SUPPO (DICLOFENAC SODIUM) [Concomitant]

REACTIONS (7)
  - ABDOMINAL DISTENSION [None]
  - CARDIAC DISORDER [None]
  - DIABETIC NEPHROPATHY [None]
  - DIASTOLIC DYSFUNCTION [None]
  - DYSPNOEA [None]
  - OEDEMA PERIPHERAL [None]
  - PLEURAL EFFUSION [None]
